FAERS Safety Report 10646857 (Version 1)
Quarter: 2014Q4

REPORT INFORMATION
  Report Type: Spontaneous
  Country: US (occurrence: US)
  Receive Date: 20141211
  Receipt Date: 20141211
  Transmission Date: 20150529
  Serious: Yes (Other)
  Sender: FDA-Public Use
  Company Number: US-GILEAD-2014-0126042

PATIENT
  Sex: Male

DRUGS (2)
  1. HARVONI [Suspect]
     Active Substance: LEDIPASVIR\SOFOSBUVIR
     Indication: HEPATITIS C
     Dosage: UNK, QD
     Route: 048
     Dates: start: 201411
  2. LACTULOSE. [Concomitant]
     Active Substance: LACTULOSE
     Indication: HEPATIC ENCEPHALOPATHY

REACTIONS (17)
  - Blood pressure fluctuation [None]
  - Muscle spasms [Unknown]
  - Insomnia [Unknown]
  - Speech disorder [Unknown]
  - Asthenopia [Unknown]
  - Back pain [Unknown]
  - Hypoglycaemia [Unknown]
  - Dysarthria [Unknown]
  - Feeling abnormal [Unknown]
  - Peripheral swelling [Unknown]
  - Headache [Unknown]
  - Ascites [Unknown]
  - Fatigue [Unknown]
  - Hunger [Unknown]
  - Blood glucose decreased [Unknown]
  - Joint stiffness [Unknown]
  - Yellow skin [Unknown]
